FAERS Safety Report 10990641 (Version 1)
Quarter: 2015Q2

REPORT INFORMATION
  Report Type: Spontaneous
  Country: PL (occurrence: PL)
  Receive Date: 20150406
  Receipt Date: 20150406
  Transmission Date: 20150821
  Serious: Yes (Hospitalization)
  Sender: FDA-Public Use
  Company Number: PL-BAYER-2015-085794

PATIENT
  Age: 34 Year
  Sex: Female

DRUGS (2)
  1. CLOPIDOGREL [Suspect]
     Active Substance: CLOPIDOGREL BISULFATE
  2. ACETYLSALICYLIC ACID({=100 MG) [Suspect]
     Active Substance: ASPIRIN

REACTIONS (8)
  - Headache [None]
  - Vision blurred [None]
  - Haemorrhagic stroke [None]
  - Metamorphopsia [Recovered/Resolved]
  - Hemianopia [None]
  - Prosopagnosia [Recovered/Resolved]
  - Cerebral haematoma [Recovered/Resolved]
  - Visual impairment [None]
